FAERS Safety Report 10169460 (Version 4)
Quarter: 2018Q1

REPORT INFORMATION
  Report Type: Spontaneous
  Country: US (occurrence: US)
  Receive Date: 20140513
  Receipt Date: 20180315
  Transmission Date: 20180508
  Serious: No
  Sender: FDA-Public Use
  Company Number: US-PFIZER INC-2014130471

PATIENT
  Age: 56 Year
  Sex: Male

DRUGS (9)
  1. CEFADROXIL MONOHYDRATE [Suspect]
     Active Substance: CEFADROXIL
     Dosage: UNK
  2. ZOLOFT [Suspect]
     Active Substance: SERTRALINE HYDROCHLORIDE
     Dosage: UNK
  3. CIPROFLOXACIN HYDROCHLORIDE. [Suspect]
     Active Substance: CIPROFLOXACIN HYDROCHLORIDE
     Dosage: UNK
  4. DURICEF [Suspect]
     Active Substance: CEFADROXIL
     Dosage: UNK
  5. ATENOLOL. [Suspect]
     Active Substance: ATENOLOL
     Dosage: UNK
  6. MELOXICAM. [Suspect]
     Active Substance: MELOXICAM
     Dosage: UNK
  7. CIPRO [Suspect]
     Active Substance: CIPROFLOXACIN HYDROCHLORIDE
     Dosage: UNK
  8. PAMELOR [Suspect]
     Active Substance: NORTRIPTYLINE HYDROCHLORIDE
     Dosage: UNK
  9. VANCOMYCIN HCL [Suspect]
     Active Substance: VANCOMYCIN HYDROCHLORIDE
     Dosage: UNK

REACTIONS (1)
  - Drug hypersensitivity [Unknown]
